FAERS Safety Report 10610740 (Version 2)
Quarter: 2014Q4

REPORT INFORMATION
  Report Type: Spontaneous
  Country: US (occurrence: US)
  Receive Date: 20141126
  Receipt Date: 20141126
  Transmission Date: 20150529
  Serious: Yes (Death)
  Sender: FDA-Public Use
  Company Number: US-MALLINCKRODT-T201403913

PATIENT
  Sex: Male

DRUGS (7)
  1. GABLOFEN [Suspect]
     Active Substance: BACLOFEN
     Dosage: 136 MCG/DAY
     Route: 037
  2. LASIX [Concomitant]
     Active Substance: FUROSEMIDE
  3. MIDODRINE [Concomitant]
     Active Substance: MIDODRINE
  4. POTASSIUM CHLORIDE. [Concomitant]
     Active Substance: POTASSIUM CHLORIDE
  5. GABLOFEN [Suspect]
     Active Substance: BACLOFEN
     Indication: MUSCLE SPASTICITY
     Dosage: 846.8 MCG/DAY
     Route: 037
  6. ONDANSETRON [Concomitant]
     Active Substance: ONDANSETRON
  7. VITAMIN D [Concomitant]
     Active Substance: CHOLECALCIFEROL

REACTIONS (1)
  - Death [Fatal]
